FAERS Safety Report 6057629-7 (Version None)
Quarter: 2009Q1

REPORT INFORMATION
  Report Type: 
  Country: None (occurrence: None)
  Receive Date: 20090127
  Receipt Date: 20090127
  Transmission Date: 20090719
  Serious: No
  Sender: FDA-Public Use
  Company Number: None

PATIENT
  Age: 69 Year
  Sex: Female
  Weight: 63.5036 kg

DRUGS (2)
  1. MACROBID [Suspect]
     Indication: URINARY TRACT INFECTION
     Dosage: 1 CAPSULE TWICE A DAY PO
     Route: 048
     Dates: start: 20090120, end: 20090123
  2. DILTIAZEM 120 MG PUREPAC [Suspect]
     Indication: HEART RATE INCREASED
     Dosage: 1 CAPSULE ONCE A DAY PO
     Route: 048
     Dates: start: 20070928, end: 20090123

REACTIONS (2)
  - ASPHYXIA [None]
  - COUGH [None]
